FAERS Safety Report 9475676 (Version 4)
Quarter: 2013Q3

REPORT INFORMATION
  Report Type: Spontaneous
  Country: GR (occurrence: GR)
  Receive Date: 20130826
  Receipt Date: 20130906
  Transmission Date: 20140515
  Serious: Yes (Other)
  Sender: FDA-Public Use
  Company Number: PHHY2013GR090598

PATIENT
  Age: 78 Year
  Sex: Male

DRUGS (1)
  1. COPALIA [Suspect]
     Dosage: 1 DF (160 MG VALS, 5 MG AMLO), UNK

REACTIONS (10)
  - Anaphylactic shock [Recovered/Resolved]
  - Eye oedema [Recovered/Resolved]
  - Face oedema [Recovered/Resolved]
  - Eye swelling [Unknown]
  - Seborrhoeic dermatitis [Recovered/Resolved]
  - Skin lesion [Unknown]
  - Dermatitis exfoliative [Recovered/Resolved]
  - Erythema [Recovered/Resolved]
  - Pruritus [Recovered/Resolved]
  - Drug hypersensitivity [Recovered/Resolved]
